FAERS Safety Report 5506778-8 (Version None)
Quarter: 2007Q4

REPORT INFORMATION
  Report Type: 
  Country: None (occurrence: None)
  Receive Date: 20071101
  Receipt Date: 20071024
  Transmission Date: 20080405
  Serious: Yes (Other)
  Sender: FDA-Public Use
  Company Number: 2007331620

PATIENT
  Age: 62 Year
  Sex: Female
  Weight: 67.1324 kg

DRUGS (6)
  1. BENADRYL CREAM EXTRA STRENGTH (DIPHENHYDRAMINE, ZINC ACETATE) [Suspect]
     Indication: DERMATITIS CONTACT
     Dosage: 3 X 1 DAY,TOPICAL
     Route: 061
     Dates: start: 20070923
  2. BENADRYL CREAM EXTRA STRENGTH (DIPHENHYDRAMINE, ZINC ACETATE) [Suspect]
  3. PREDNISONE [Suspect]
     Indication: DERMATITIS CONTACT
     Dosage: 40MG, ORAL
     Route: 048
     Dates: start: 20070923, end: 20071010
  4. RELAFEN [Concomitant]
  5. XANAX [Concomitant]
  6. DARVOCET [Concomitant]

REACTIONS (13)
  - ANXIETY [None]
  - DRUG INEFFECTIVE [None]
  - ERYTHEMA [None]
  - EYE PAIN [None]
  - EYE SWELLING [None]
  - EYELID OEDEMA [None]
  - LIP PAIN [None]
  - PAIN [None]
  - PRURITUS [None]
  - RASH ERYTHEMATOUS [None]
  - SKIN BURNING SENSATION [None]
  - SLEEP DISORDER [None]
  - THROAT TIGHTNESS [None]
